FAERS Safety Report 16988705 (Version 3)
Quarter: 2019Q4

REPORT INFORMATION
  Report Type: Spontaneous
  Country: JP (occurrence: JP)
  Receive Date: 20191104
  Receipt Date: 20191130
  Transmission Date: 20200122
  Serious: Yes (Other)
  Sender: FDA-Public Use
  Company Number: JP-BRISTOL-MYERS SQUIBB COMPANY-BMS-2019-105443

PATIENT
  Age: 69 Year
  Sex: Male

DRUGS (6)
  1. YERVOY [Suspect]
     Active Substance: IPILIMUMAB
     Indication: MALIGNANT MELANOMA
     Dosage: UNK
     Route: 041
  2. OPDIVO [Suspect]
     Active Substance: NIVOLUMAB
     Indication: METASTASES TO LUNG
     Route: 065
  3. YERVOY [Suspect]
     Active Substance: IPILIMUMAB
     Indication: METASTASES TO LUNG
     Route: 065
  4. OPDIVO [Suspect]
     Active Substance: NIVOLUMAB
     Indication: MALIGNANT MELANOMA
     Dosage: UNK
     Route: 041
  5. YERVOY [Suspect]
     Active Substance: IPILIMUMAB
     Indication: METASTASES TO LYMPH NODES
     Route: 065
  6. OPDIVO [Suspect]
     Active Substance: NIVOLUMAB
     Indication: METASTASES TO LYMPH NODES
     Route: 065

REACTIONS (2)
  - Thrombotic microangiopathy [Unknown]
  - Tubulointerstitial nephritis [Recovering/Resolving]
